FAERS Safety Report 7728856-5 (Version None)
Quarter: 2011Q3

REPORT INFORMATION
  Report Type: 
  Country: None (occurrence: None)
  Receive Date: 20110831
  Receipt Date: 20110831
  Transmission Date: 20111222
  Serious: Yes (Life-Threatening, Hospitalization)
  Sender: FDA-Public Use
  Company Number: None

PATIENT
  Age: 63 Year
  Sex: Female
  Weight: 74.3899 kg

DRUGS (1)
  1. NAPROXEN (ALEVE) [Suspect]
     Indication: HEADACHE
     Dates: start: 20110622

REACTIONS (8)
  - MYDRIASIS [None]
  - URINARY INCONTINENCE [None]
  - APPARENT DEATH [None]
  - PRURITUS [None]
  - LOSS OF CONSCIOUSNESS [None]
  - VOMITING [None]
  - MALAISE [None]
  - DRUG HYPERSENSITIVITY [None]
